FAERS Safety Report 4299414-2 (Version None)
Quarter: 2004Q1

REPORT INFORMATION
  Report Type: 
  Country: None (occurrence: None)
  Receive Date: 20040217
  Receipt Date: 20040205
  Transmission Date: 20041129
  Serious: Yes (Other)
  Sender: FDA-Public Use
  Company Number: 2003126826

PATIENT
  Age: 63 Year
  Sex: Female

DRUGS (2)
  1. UNASYN [Suspect]
     Indication: POSTOPERATIVE INFECTION
     Dosage: 1.5 GRAM, INTRAV
     Route: 042
     Dates: start: 20031119, end: 20031215
  2. GALENIC /PANIPENEM/BETAMIPRON/  (BETAMIPRON,PANIPENEM) [Concomitant]

REACTIONS (2)
  - PYREXIA [None]
  - WHITE BLOOD CELL COUNT DECREASED [None]
